FAERS Safety Report 14761313 (Version 3)
Quarter: 2019Q1

REPORT INFORMATION
  Report Type: Report from Study
  Country: US (occurrence: US)
  Receive Date: 20180415
  Receipt Date: 20190213
  Transmission Date: 20190417
  Serious: No
  Sender: FDA-Public Use
  Company Number: PHEH2018US013001

PATIENT
  Sex: Female

DRUGS (1)
  1. COSENTYX [Suspect]
     Active Substance: SECUKINUMAB
     Indication: PSORIATIC ARTHROPATHY
     Dosage: 300 MG, QMO
     Route: 065

REACTIONS (7)
  - Inflammation [Unknown]
  - Skin exfoliation [Unknown]
  - Stress [Unknown]
  - Urticaria [Unknown]
  - Diarrhoea [Unknown]
  - Pigmentation disorder [Unknown]
  - Arthralgia [Unknown]
